FAERS Safety Report 17434792 (Version 7)
Quarter: 2020Q2

REPORT INFORMATION
  Report Type: Report from Study
  Country: HU (occurrence: HU)
  Receive Date: 20200219
  Receipt Date: 20200413
  Transmission Date: 20200713
  Serious: Yes (Hospitalization, Other)
  Sender: FDA-Public Use
  Company Number: NVSC2020HU042764

PATIENT
  Age: 72 Year
  Sex: Female

DRUGS (4)
  1. KISQALI [Suspect]
     Active Substance: RIBOCICLIB
     Dosage: 2 DF, QD
     Route: 048
  2. KISQALI [Suspect]
     Active Substance: RIBOCICLIB
     Indication: BREAST CANCER METASTATIC
     Dosage: 3 DF, QD
     Route: 048
  3. NEOGRAND [Suspect]
     Active Substance: CLODRONATE DISODIUM
     Indication: BREAST CANCER METASTATIC
     Dosage: 1/1 DAY
     Route: 048
     Dates: start: 20181116, end: 20200212
  4. FASLODEX [Concomitant]
     Active Substance: FULVESTRANT
     Indication: BREAST CANCER METASTATIC
     Dosage: 1X IN 28 DAYS
     Route: 030

REACTIONS (14)
  - Blood creatinine abnormal [Unknown]
  - Blood urea abnormal [Unknown]
  - Gamma-glutamyltransferase increased [Unknown]
  - Red cell distribution width increased [Unknown]
  - Glomerular filtration rate abnormal [Unknown]
  - Urinary tract infection [Unknown]
  - Renal impairment [Recovering/Resolving]
  - Aspartate aminotransferase increased [Recovering/Resolving]
  - Blood lactate dehydrogenase increased [Unknown]
  - Eosinophil count increased [Unknown]
  - Alanine aminotransferase increased [Recovering/Resolving]
  - Basophil count increased [Unknown]
  - Blood alkaline phosphatase increased [Unknown]
  - Blood glucose increased [Recovering/Resolving]

NARRATIVE: CASE EVENT DATE: 20200212
